FAERS Safety Report 23687434 (Version 1)
Quarter: 2024Q1

REPORT INFORMATION
  Report Type: Spontaneous
  Country: RO (occurrence: RO)
  Receive Date: 20240329
  Receipt Date: 20240329
  Transmission Date: 20240409
  Serious: Yes (Other)
  Sender: FDA-Public Use
  Company Number: RO-PFIZER INC-PV202400040549

PATIENT
  Age: 52 Year
  Sex: Female

DRUGS (2)
  1. PALBOCICLIB [Suspect]
     Active Substance: PALBOCICLIB
     Indication: Breast cancer stage IV
     Dosage: 125 MG, CYCLIC (21 DAYS AND 7-DAYS FREE)
     Dates: start: 201804
  2. LETROZOLE [Suspect]
     Active Substance: LETROZOLE
     Dosage: 2.5 MG (TAKEN WITHOUT INTERRUPTION)

REACTIONS (2)
  - Hepatic cytolysis [Unknown]
  - Neutropenia [Unknown]
